FAERS Safety Report 4550038-9 (Version None)
Quarter: 2005Q1

REPORT INFORMATION
  Report Type: 
  Country: None (occurrence: None)
  Receive Date: 20050112
  Receipt Date: 20040426
  Transmission Date: 20050727
  Serious: Yes (Hospitalization)
  Sender: FDA-Public Use
  Company Number: 200414439GDDC

PATIENT
  Age: 82 Year
  Sex: Female

DRUGS (3)
  1. RIFADIN [Suspect]
     Indication: LYMPH NODE TUBERCULOSIS
     Route: 048
     Dates: start: 20040301, end: 20040510
  2. ISCOTIN [Suspect]
     Indication: LYMPH NODE TUBERCULOSIS
     Route: 048
     Dates: start: 20040301, end: 20040427
  3. ETHAMBUTOL HCL [Concomitant]
     Indication: LYMPH NODE TUBERCULOSIS
     Route: 048
     Dates: start: 20040301, end: 20040510

REACTIONS (6)
  - ANAEMIA HAEMOLYTIC AUTOIMMUNE [None]
  - ANOREXIA [None]
  - COMPLEMENT FACTOR DECREASED [None]
  - COOMBS TEST POSITIVE [None]
  - SYSTEMIC LUPUS ERYTHEMATOSUS [None]
  - WHITE BLOOD CELL COUNT DECREASED [None]
